FAERS Safety Report 10222967 (Version 2)
Quarter: 2014Q2

REPORT INFORMATION
  Report Type: Spontaneous
  Country: IT (occurrence: IT)
  Receive Date: 20140607
  Receipt Date: 20140625
  Transmission Date: 20141212
  Serious: Yes (Hospitalization)
  Sender: FDA-Public Use
  Company Number: PHHY2014IT065608

PATIENT
  Age: 42 Year
  Sex: Male

DRUGS (2)
  1. AMOXICILLIN+CLAVULANATE [Suspect]
     Indication: PYREXIA
     Dates: start: 20140330, end: 20140401
  2. ATENOLOL [Concomitant]
     Dosage: 50 MG,

REACTIONS (3)
  - Oedema peripheral [Recovering/Resolving]
  - Chest pain [Recovering/Resolving]
  - Pruritus [Recovering/Resolving]
